FAERS Safety Report 4814136-4 (Version None)
Quarter: 2005Q4

REPORT INFORMATION
  Report Type: 
  Country: None (occurrence: None)
  Receive Date: 20051028
  Receipt Date: 20050706
  Transmission Date: 20060501
  Serious: No
  Sender: FDA-Public Use
  Company Number: US-GLAXOSMITHKLINE-A0565187A

PATIENT
  Sex: Female

DRUGS (3)
  1. ADVAIR DISKUS 100/50 [Suspect]
     Dosage: 1PUFF AS REQUIRED
     Route: 055
  2. EVISTA [Concomitant]
  3. TYLENOL (CAPLET) [Concomitant]

REACTIONS (2)
  - DRUG INEFFECTIVE [None]
  - DRY EYE [None]
